FAERS Safety Report 4766615-6 (Version None)
Quarter: 2005Q3

REPORT INFORMATION
  Report Type: 
  Country: None (occurrence: None)
  Receive Date: 20050912
  Receipt Date: 20050825
  Transmission Date: 20060218
  Serious: Yes (Death)
  Sender: FDA-Public Use
  Company Number: A03200502076

PATIENT
  Age: 48 Year
  Sex: Female
  Weight: 185.0676 kg

DRUGS (8)
  1. ELOXATIN [Suspect]
     Indication: COLON CANCER
     Dosage: 125 MG GIVEN EVERY 29 DAYS - INTRAVENOUS NOS
     Route: 042
     Dates: start: 20050629, end: 20050629
  2. ELOXATIN [Suspect]
     Indication: METASTASIS
     Dosage: 125 MG GIVEN EVERY 29 DAYS - INTRAVENOUS NOS
     Route: 042
     Dates: start: 20050629, end: 20050629
  3. BEVACIZUMAB [Concomitant]
  4. PALONOSETRON HYDROCHLORIDE [Concomitant]
  5. DEXAMETHASONE [Concomitant]
  6. APREPITANT [Concomitant]
  7. ACETAMINOPHEN [Concomitant]
  8. DIPHENHYDRAMINE HCL [Concomitant]

REACTIONS (7)
  - ANAPHYLACTIC REACTION [None]
  - CARDIO-RESPIRATORY ARREST [None]
  - DIZZINESS [None]
  - INFUSION RELATED REACTION [None]
  - LOSS OF CONSCIOUSNESS [None]
  - NAUSEA [None]
  - PULSE ABSENT [None]
